FAERS Safety Report 6362154-X (Version None)
Quarter: 2009Q3

REPORT INFORMATION
  Report Type: 
  Country: None (occurrence: None)
  Receive Date: 20090918
  Receipt Date: 20090914
  Transmission Date: 20100115
  Serious: Yes (Other)
  Sender: FDA-Public Use
  Company Number: US-JNJCH-2009024895

PATIENT
  Age: 81 Year
  Sex: Female
  Weight: 76.7 kg

DRUGS (2)
  1. BENADRYL [Suspect]
     Indication: HYPERSENSITIVITY
     Dosage: TEXT:USED PRODUCT AT NIGHT AS DIRECTED
     Route: 048
  2. DIPHENHYDRAMINE HCL [Suspect]
     Indication: HYPERSENSITIVITY
     Dosage: TEXT:USED PRODUCT AT NIGHT AS DIRECTED
     Route: 048

REACTIONS (1)
  - BRAIN INJURY [None]
